FAERS Safety Report 7496596-6 (Version None)
Quarter: 2011Q2

REPORT INFORMATION
  Report Type: 
  Country: None (occurrence: None)
  Receive Date: 20110520
  Receipt Date: 20110520
  Transmission Date: 20111010
  Serious: Yes (Hospitalization)
  Sender: FDA-Public Use
  Company Number: None

PATIENT
  Age: 56 Year
  Sex: Female
  Weight: 90.7874 kg

DRUGS (15)
  1. ZOLOFT [Concomitant]
  2. XANAX [Concomitant]
  3. RAD001 [Concomitant]
  4. FLUTICASONE PROPIONATE [Concomitant]
  5. ACTUATION NASAL SPRAY [Concomitant]
  6. LISINOPRIL [Concomitant]
  7. PROCHLORPERAZINE MALEATE [Concomitant]
  8. TRANSDERM PATCH [Concomitant]
  9. SERTRALINE HYDROCHLORIDE [Concomitant]
  10. LIDOCAINE [Concomitant]
  11. TAXOL [Suspect]
     Indication: BREAST CANCER
     Dosage: 52MG Q WEEK X 12 IV
     Route: 042
     Dates: start: 20101210
  12. ZOFRAN [Concomitant]
  13. CISPLATIN [Suspect]
     Indication: BREAST CANCER
     Dosage: 166MG Q WEEK X 12 IV
     Route: 042
     Dates: start: 20101210
  14. OMEPRAZOLE [Concomitant]
  15. PRILOSEC [Concomitant]

REACTIONS (4)
  - VOMITING [None]
  - WEIGHT DECREASED [None]
  - PHARYNGITIS STREPTOCOCCAL [None]
  - NAUSEA [None]
